FAERS Safety Report 9839196 (Version 2)
Quarter: 2014Q1

REPORT INFORMATION
  Report Type: Spontaneous
  Country: KR (occurrence: KR)
  Receive Date: 20140123
  Receipt Date: 20140218
  Transmission Date: 20141002
  Serious: Yes (Death, Other)
  Sender: FDA-Public Use
  Company Number: KR-JHP PHARMACEUTICALS, LLC-JHP201400005

PATIENT
  Age: 75 Year
  Sex: Male

DRUGS (12)
  1. COLY-MYCIN M PARENTERAL [Suspect]
     Indication: PNEUMONIA
     Dosage: 150 MG, DAILY
     Route: 055
  2. MEROPENEM [Concomitant]
  3. VANCOMYCIN [Concomitant]
  4. TEICOPLANIN [Concomitant]
  5. IPRATROPIUM BROMIDE [Concomitant]
  6. ACETYLCYSTEINE [Concomitant]
  7. NICERGOLINE [Concomitant]
  8. TAMSULOSIN [Concomitant]
  9. PHENYTOIN [Concomitant]
  10. ACETAZOLAM [Concomitant]
  11. ALUMINUM HYDROXIDE [Concomitant]
  12. SALBUTAMOL [Concomitant]

REACTIONS (5)
  - Renal failure acute [Unknown]
  - Staphylococcal infection [Unknown]
  - Pneumonia [Fatal]
  - Off label use [Not Recovered/Not Resolved]
  - Treatment failure [Not Recovered/Not Resolved]
